FAERS Safety Report 14644190 (Version 2)
Quarter: 2018Q2

REPORT INFORMATION
  Report Type: Report from Study
  Country: US (occurrence: US)
  Receive Date: 20180315
  Receipt Date: 20180418
  Transmission Date: 20180711
  Serious: Yes (Death, Hospitalization)
  Sender: FDA-Public Use
  Company Number: US-ACTELION-A-NJ2017-156811

PATIENT
  Age: 72 Year
  Sex: Female
  Weight: 55.78 kg

DRUGS (5)
  1. OXYGEN. [Concomitant]
     Active Substance: OXYGEN
  2. OFEV [Concomitant]
     Active Substance: NINTEDANIB
  3. DILTIAZEM. [Concomitant]
     Active Substance: DILTIAZEM
  4. WARFARIN [Concomitant]
     Active Substance: WARFARIN
  5. TRACLEER [Suspect]
     Active Substance: BOSENTAN
     Indication: PULMONARY HYPERTENSION
     Dosage: 125 MG, BID
     Route: 048

REACTIONS (9)
  - Flatulence [Unknown]
  - Abdominal discomfort [Unknown]
  - Functional gastrointestinal disorder [Unknown]
  - Death [Fatal]
  - Nasopharyngitis [Unknown]
  - Dyspnoea [Unknown]
  - Respiratory disorder [Unknown]
  - Dyspnoea exertional [Unknown]
  - Cough [Unknown]

NARRATIVE: CASE EVENT DATE: 20180409
